FAERS Safety Report 7000840-9 (Version None)
Quarter: 2010Q3

REPORT INFORMATION
  Report Type: 
  Country: None (occurrence: None)
  Receive Date: 20100920
  Receipt Date: 20091102
  Transmission Date: 20110219
  Serious: No
  Sender: FDA-Public Use
  Company Number: US-ASTRAZENECA-2009SE24054

PATIENT
  Age: 432 Month
  Sex: Female
  Weight: 56.7 kg

DRUGS (3)
  1. SEROQUEL XR [Suspect]
     Route: 048
     Dates: start: 20091001
  2. KLONOPIN [Concomitant]
  3. PROTONIX [Concomitant]

REACTIONS (1)
  - ACNE [None]
